FAERS Safety Report 6024978-8 (Version None)
Quarter: 2008Q4

REPORT INFORMATION
  Report Type: 
  Country: None (occurrence: None)
  Receive Date: 20081231
  Receipt Date: 20081223
  Transmission Date: 20090506
  Serious: Yes (Hospitalization)
  Sender: FDA-Public Use
  Company Number: AT-PFIZER INC-2008153138

PATIENT

DRUGS (3)
  1. SALAZOPYRIN [Suspect]
     Indication: POLYARTHRITIS
     Dosage: UNK
     Dates: end: 20081112
  2. PREDNISOLONE [Concomitant]
  3. GLUCOPHAGE [Concomitant]

REACTIONS (3)
  - ASTHMA [None]
  - DYSPNOEA [None]
  - NASOPHARYNGITIS [None]
